FAERS Safety Report 9919890 (Version 1)
Quarter: 2014Q1

REPORT INFORMATION
  Report Type: Report from Study
  Country: AU (occurrence: AU)
  Receive Date: 20140224
  Receipt Date: 20140224
  Transmission Date: 20141002
  Serious: Yes (Hospitalization, Other)
  Sender: FDA-Public Use
  Company Number: PHHY2014AU021339

PATIENT
  Age: 54 Year
  Sex: Female

DRUGS (16)
  1. MYCOPHENOLIC ACID [Suspect]
     Indication: IMMUNOSUPPRESSION
     Dosage: 720 MG, PER DAY
     Route: 048
     Dates: start: 20140128
  2. MYCOPHENOLIC ACID [Suspect]
     Dosage: 1440 MG, PER DAY
     Route: 048
     Dates: start: 20140201, end: 20140207
  3. AMLODIPINE [Concomitant]
     Indication: HYPERTENSION
     Dosage: 5 MG, QD
  4. EPREX [Concomitant]
     Indication: ANAEMIA OF CHRONIC DISEASE
     Dosage: 40000 U/ML, QW
     Route: 042
  5. AZATHIOPRINE [Concomitant]
     Indication: SYSTEMIC LUPUS ERYTHEMATOSUS
     Dosage: 50 MG, QW
  6. ALLOPURINOL [Concomitant]
     Indication: GOUT
     Dosage: 100 MG, UNK
  7. CHOLECALCIFEROL [Concomitant]
     Indication: BLOOD PHOSPHORUS ABNORMAL
     Dosage: 1.5 G, TID
  8. DOCUSATE [Concomitant]
     Indication: CONSTIPATION
     Dosage: 50 MG, PRN
  9. FISH OIL [Concomitant]
     Indication: NUTRITIONAL SUPPLEMENTATION
     Dosage: 1 G, BID
  10. FRUSEMIDE [Concomitant]
     Indication: FLUID RETENTION
     Dosage: 20 MG, QD
  11. PANTOPRAZOLE [Concomitant]
     Indication: GASTROOESOPHAGEAL REFLUX DISEASE
     Dosage: 40 MG, QD
  12. ROSUVASTATIN [Concomitant]
     Indication: BLOOD CHOLESTEROL INCREASED
     Dosage: 10 MG, QD
  13. WARFARIN [Concomitant]
     Indication: DEEP VEIN THROMBOSIS
  14. WARFARIN [Concomitant]
     Indication: PULMONARY EMBOLISM
  15. ATENOLOL [Concomitant]
     Indication: HYPERTENSION
     Dosage: 50 MG, BID
  16. PREDNISOLONA [Concomitant]
     Indication: SYSTEMIC LUPUS ERYTHEMATOSUS
     Dosage: 5 MG, QD

REACTIONS (10)
  - Diarrhoea [Recovered/Resolved]
  - Dehydration [Recovered/Resolved]
  - Tongue dry [Unknown]
  - Skin turgor decreased [Unknown]
  - Vomiting [Unknown]
  - Renal failure acute [Unknown]
  - Lethargy [Unknown]
  - Nausea [Unknown]
  - Serum ferritin increased [Unknown]
  - Haemoglobin decreased [Unknown]
